FAERS Safety Report 4999927-1 (Version None)
Quarter: 2006Q2

REPORT INFORMATION
  Report Type: 
  Country: None (occurrence: None)
  Receive Date: 20060510
  Receipt Date: 20060424
  Transmission Date: 20061013
  Serious: Yes (Hospitalization)
  Sender: FDA-Public Use
  Company Number: DSA_28097_2006

PATIENT
  Age: 40 Year
  Sex: Female

DRUGS (3)
  1. TAVOR [Suspect]
     Dosage: 5 MG ONCE PO
     Route: 048
     Dates: start: 20060421, end: 20060421
  2. AMITRIPTYLINE HCL [Suspect]
     Dosage: DF ONCE PO
     Route: 048
     Dates: start: 20060421, end: 20060421
  3. ALCOHOL [Suspect]
     Dosage: DF ONCE PO
     Route: 048
     Dates: start: 20060421, end: 20060421

REACTIONS (4)
  - BLOOD ALCOHOL INCREASED [None]
  - OVERDOSE [None]
  - PUPILLARY REFLEX IMPAIRED [None]
  - SUICIDE ATTEMPT [None]
